FAERS Safety Report 7491846-4 (Version None)
Quarter: 2011Q2

REPORT INFORMATION
  Report Type: 
  Country: None (occurrence: None)
  Receive Date: 20110519
  Receipt Date: 20110511
  Transmission Date: 20111010
  Serious: Yes (Death, Hospitalization)
  Sender: FDA-Public Use
  Company Number: JP-BRISTOL-MYERS SQUIBB COMPANY-15750839

PATIENT
  Age: 75 Year
  Sex: Male

DRUGS (1)
  1. VEPESID [Suspect]
     Indication: ADULT T-CELL LYMPHOMA/LEUKAEMIA

REACTIONS (3)
  - SMALL INTESTINAL PERFORATION [None]
  - CYTOMEGALOVIRUS INFECTION [None]
  - SEPSIS [None]
